FAERS Safety Report 7672581-6 (Version None)
Quarter: 2011Q3

REPORT INFORMATION
  Report Type: 
  Country: None (occurrence: None)
  Receive Date: 20110809
  Receipt Date: 20110801
  Transmission Date: 20111222
  Serious: Yes (Hospitalization, Other)
  Sender: FDA-Public Use
  Company Number: US-PURDUE-USA-2011-0072822

PATIENT
  Age: 61 Year
  Sex: Female

DRUGS (3)
  1. IPILIMUMAB [Suspect]
     Indication: MALIGNANT MELANOMA
     Dosage: 614 MG, UNK
     Route: 042
  2. DILAUDID [Suspect]
     Indication: PRODUCT USED FOR UNKNOWN INDICATION
     Dosage: UNK
  3. METHADONE HYDROCHLORIDE [Suspect]
     Indication: PRODUCT USED FOR UNKNOWN INDICATION

REACTIONS (4)
  - NEOPLASM MALIGNANT [None]
  - HALLUCINATION [None]
  - HYPERCALCAEMIA [None]
  - MENTAL STATUS CHANGES [None]
